FAERS Safety Report 25200893 (Version 1)
Quarter: 2025Q2

REPORT INFORMATION
  Report Type: Spontaneous
  Country: US (occurrence: US)
  Receive Date: 20250415
  Receipt Date: 20250415
  Transmission Date: 20250717
  Serious: No
  Sender: JOHNSON AND JOHNSON
  Company Number: US-JNJFOC-20250412227

PATIENT
  Age: 38 Year
  Sex: Female

DRUGS (10)
  1. SPRAVATO [Suspect]
     Active Substance: ESKETAMINE
     Indication: Major depression
     Route: 045
     Dates: start: 20250218
  2. ALPRAZOLAM [Concomitant]
     Active Substance: ALPRAZOLAM
  3. BOTOX [Concomitant]
     Active Substance: ONABOTULINUMTOXINA
  4. Celecoxide [Concomitant]
  5. DOXAZOSIN [Concomitant]
     Active Substance: DOXAZOSIN MESYLATE
  6. DOXEPIN [Concomitant]
     Active Substance: DOXEPIN
  7. GABAPENTIN [Concomitant]
     Active Substance: GABAPENTIN
  8. HYDROXYCHLOROQUINE SULFATE [Concomitant]
     Active Substance: HYDROXYCHLOROQUINE SULFATE
  9. LACOSAMIDE [Concomitant]
     Active Substance: LACOSAMIDE
  10. LORAZEPAM [Concomitant]
     Active Substance: LORAZEPAM

REACTIONS (1)
  - Discomfort [Unknown]
